FAERS Safety Report 8539369-5 (Version None)
Quarter: 2012Q3

REPORT INFORMATION
  Report Type: 
  Country: None (occurrence: None)
  Receive Date: 20120726
  Receipt Date: 20110720
  Transmission Date: 20120928
  Serious: No
  Sender: FDA-Public Use
  Company Number: US-ASTRAZENECA-2011SE43644

PATIENT
  Age: 59 Year
  Sex: Female
  Weight: 104.3 kg

DRUGS (8)
  1. TRAZODONE HCL [Concomitant]
     Indication: ANTIDEPRESSANT THERAPY
  2. ZOCOR [Concomitant]
     Indication: BLOOD CHOLESTEROL ABNORMAL
  3. LITHIUM CARBONATE [Concomitant]
  4. CLONAZEPAM [Concomitant]
     Indication: ANTIDEPRESSANT THERAPY
  5. ASPIRIN [Concomitant]
     Indication: BLOOD PRESSURE ABNORMAL
  6. SEROQUEL [Suspect]
     Route: 048
  7. SERTRALINE HYDROCHLORIDE [Concomitant]
     Indication: ANTIDEPRESSANT THERAPY
  8. SYNTHROID [Concomitant]
     Indication: THYROID DISORDER

REACTIONS (4)
  - DYSARTHRIA [None]
  - DRUG DOSE OMISSION [None]
  - DYSKINESIA [None]
  - MALAISE [None]
